FAERS Safety Report 18811085 (Version 3)
Quarter: 2021Q2

REPORT INFORMATION
  Report Type: Report from Study
  Country: IL (occurrence: IL)
  Receive Date: 20210129
  Receipt Date: 20210420
  Transmission Date: 20210717
  Serious: Yes (Death, Hospitalization, Other)
  Sender: FDA-Public Use
  Company Number: PHHY2016IL161879

PATIENT
  Age: 78 Year
  Sex: Female

DRUGS (3)
  1. SANDOSTATIN LAR DEPOT [Suspect]
     Active Substance: OCTREOTIDE ACETATE
     Dosage: UNK
     Route: 030
     Dates: start: 20190120
  2. SANDOSTATIN LAR DEPOT [Suspect]
     Active Substance: OCTREOTIDE ACETATE
     Indication: NEUROENDOCRINE TUMOUR
     Dosage: 30 MG, Q4W
     Route: 030
     Dates: start: 20160317
  3. SANDOSTATIN LAR DEPOT [Suspect]
     Active Substance: OCTREOTIDE ACETATE
     Dosage: UNK
     Route: 065
     Dates: start: 20181223

REACTIONS (12)
  - Death [Fatal]
  - Blood cholesterol abnormal [Unknown]
  - General physical health deterioration [Unknown]
  - Deformity [Unknown]
  - Coronavirus infection [Not Recovered/Not Resolved]
  - Dizziness [Unknown]
  - Seizure [Unknown]
  - Dyspepsia [Unknown]
  - Pneumonia [Unknown]
  - Blood pressure abnormal [Unknown]
  - Meningioma [Unknown]
  - Concomitant disease aggravated [Unknown]

NARRATIVE: CASE EVENT DATE: 20210116
